FAERS Safety Report 9341859 (Version 4)
Quarter: 2013Q4

REPORT INFORMATION
  Report Type: Spontaneous
  Country: US (occurrence: None)
  Receive Date: 20130606
  Receipt Date: 20131023
  Transmission Date: 20140711
  Serious: Yes (Hospitalization, Other)
  Sender: FDA-Public Use
  Company Number: JPI-P-032549

PATIENT
  Age: 45 Year
  Sex: Male

DRUGS (1)
  1. XYREM [Suspect]
     Indication: NARCOLEPSY
     Dosage: 10 GM ( 5 GM, 2 IN 1 D), ORAL
     Route: 048
     Dates: start: 20060925, end: 20100909

REACTIONS (8)
  - Fibromyalgia [None]
  - Intervertebral disc disorder [None]
  - Fistula [None]
  - Pain [None]
  - Back pain [None]
  - Sensory disturbance [None]
  - Therapeutic response unexpected [None]
  - Weight decreased [None]
